FAERS Safety Report 5121441-3 (Version None)
Quarter: 2006Q4

REPORT INFORMATION
  Report Type: 
  Country: None (occurrence: None)
  Receive Date: 20061002
  Receipt Date: 20060918
  Transmission Date: 20070319
  Serious: Yes (Death)
  Sender: FDA-Public Use
  Company Number: 2006113555

PATIENT

DRUGS (3)
  1. LYRICA [Suspect]
     Indication: PAIN
     Dosage: 300 MG (75 MG, 4 IN 1 D)
     Dates: start: 20051201
  2. CYMBALTA [Concomitant]
  3. LAMICTAL [Concomitant]

REACTIONS (1)
  - DRUG SCREEN POSITIVE [None]
